FAERS Safety Report 24428509 (Version 1)
Quarter: 2024Q4

REPORT INFORMATION
  Report Type: Spontaneous
  Country: RO (occurrence: RO)
  Receive Date: 20241011
  Receipt Date: 20241011
  Transmission Date: 20250114
  Serious: Yes (Hospitalization, Other)
  Sender: AMGEN
  Company Number: RO-AMGEN-ROUSP2024197277

PATIENT
  Age: 54 Year
  Sex: Female

DRUGS (4)
  1. VECTIBIX [Suspect]
     Active Substance: PANITUMUMAB
     Indication: Colorectal cancer metastatic
     Dosage: UNK (6 MG/KG)
     Route: 042
     Dates: start: 2023
  2. LEUCOVORIN [Suspect]
     Active Substance: LEUCOVORIN\LEUCOVORIN CALCIUM
     Indication: Colorectal cancer metastatic
     Dosage: UNK
     Route: 042
     Dates: start: 2023
  3. FLUOROURACIL [Suspect]
     Active Substance: FLUOROURACIL
     Indication: Colorectal cancer metastatic
     Dosage: UNK
     Route: 042
     Dates: start: 2023
  4. OXALIPLATIN [Suspect]
     Active Substance: OXALIPLATIN
     Indication: Colorectal cancer metastatic
     Dosage: UNK
     Route: 042
     Dates: start: 2023

REACTIONS (8)
  - Xerophthalmia [Unknown]
  - Intestinal obstruction [Unknown]
  - Dermatitis acneiform [Unknown]
  - Conjunctivitis [Unknown]
  - Skin fissures [Unknown]
  - Keratitis [Unknown]
  - Xeroderma [Unknown]
  - Therapy partial responder [Unknown]

NARRATIVE: CASE EVENT DATE: 20230201
